FAERS Safety Report 7706984-8 (Version None)
Quarter: 2011Q3

REPORT INFORMATION
  Report Type: 
  Country: None (occurrence: None)
  Receive Date: 20110824
  Receipt Date: 20110818
  Transmission Date: 20111222
  Serious: No
  Sender: FDA-Public Use
  Company Number: US-PFIZER INC-2011191987

PATIENT
  Sex: Female

DRUGS (5)
  1. IBUPROFEN [Concomitant]
     Indication: TENDONITIS
  2. IBUPROFEN [Concomitant]
     Indication: CARPAL TUNNEL SYNDROME
     Dosage: 800 MG, AS NEEDED
     Route: 048
  3. PREMPRO [Suspect]
     Indication: MOOD SWINGS
  4. PREMPRO [Suspect]
     Indication: NIGHT SWEATS
     Dosage: 0.625/2.5 MG, DAILY
     Route: 048
     Dates: start: 19940101
  5. PREMPRO [Suspect]
     Indication: HOT FLUSH

REACTIONS (5)
  - INSOMNIA [None]
  - NIGHT SWEATS [None]
  - MOOD SWINGS [None]
  - HOT FLUSH [None]
  - POLLAKIURIA [None]
